FAERS Safety Report 10542845 (Version 3)
Quarter: 2014Q4

REPORT INFORMATION
  Report Type: Spontaneous
  Country: CN (occurrence: CN)
  Receive Date: 20141027
  Receipt Date: 20141118
  Transmission Date: 20150529
  Serious: Yes (Hospitalization)
  Sender: FDA-Public Use
  Company Number: CN-ROCHE-1479089

PATIENT
  Age: 51 Year
  Sex: Male

DRUGS (2)
  1. OXALIPLATIN. [Concomitant]
     Active Substance: OXALIPLATIN
     Indication: GASTRIC CANCER
     Dosage: DAY I
     Route: 041
  2. XELODA [Suspect]
     Active Substance: CAPECITABINE
     Indication: GASTRIC CANCER
     Dosage: FROM DAY 2 TO DAY 15
     Route: 048
     Dates: start: 20141010, end: 20141018

REACTIONS (8)
  - Pyrexia [Recovering/Resolving]
  - Gastrointestinal mucosal disorder [Unknown]
  - Atelectasis [Unknown]
  - Mouth ulceration [Recovering/Resolving]
  - Gastrointestinal inflammation [Recovering/Resolving]
  - Abdominal pain [Recovering/Resolving]
  - Anal pruritus [Unknown]
  - Proctalgia [Unknown]

NARRATIVE: CASE EVENT DATE: 20141022
